FAERS Safety Report 6160084-X (Version None)
Quarter: 2009Q2

REPORT INFORMATION
  Report Type: 
  Country: None (occurrence: None)
  Receive Date: 20090420
  Receipt Date: 20090414
  Transmission Date: 20091009
  Serious: Yes (Other)
  Sender: FDA-Public Use
  Company Number: DE-ASTRAZENECA-2009AC01054

PATIENT
  Sex: Female

DRUGS (1)
  1. LIDOCAINE [Suspect]
     Route: 042

REACTIONS (3)
  - COMA [None]
  - HYPOXIC ENCEPHALOPATHY [None]
  - OVERDOSE [None]
